FAERS Safety Report 25002116 (Version 2)
Quarter: 2025Q1

REPORT INFORMATION
  Report Type: Report from Study
  Country: DE (occurrence: DE)
  Receive Date: 20250224
  Receipt Date: 20250319
  Transmission Date: 20250409
  Serious: Yes (Disabling)
  Sender: EMD SERONO INC
  Company Number: DE-Merck Healthcare KGaA-2025008445

PATIENT
  Age: 5 Year
  Sex: Female
  Weight: 19 kg

DRUGS (1)
  1. SAIZEN [Suspect]
     Active Substance: SOMATROPIN
     Indication: Turner^s syndrome
     Dates: start: 20230720

REACTIONS (1)
  - Pain in extremity [Not Recovered/Not Resolved]

NARRATIVE: CASE EVENT DATE: 20230801
